FAERS Safety Report 10667418 (Version 4)
Quarter: 2015Q1

REPORT INFORMATION
  Report Type: Report from Study
  Country: NL (occurrence: NL)
  Receive Date: 20141222
  Receipt Date: 20150122
  Transmission Date: 20150720
  Serious: Yes (Hospitalization)
  Sender: FDA-Public Use
  Company Number: NL-AMGEN-NLDSL2014099019

PATIENT
  Age: 59 Year
  Sex: Male

DRUGS (1)
  1. ARANESP [Suspect]
     Active Substance: DARBEPOETIN ALFA
     Indication: NEOPLASM MALIGNANT
     Dosage: 200 UNK, QWK
     Route: 058
     Dates: start: 20131025

REACTIONS (4)
  - Renal disorder [Unknown]
  - Localised intraabdominal fluid collection [Recovered/Resolved]
  - Fracture [Unknown]
  - Liver disorder [Unknown]

NARRATIVE: CASE EVENT DATE: 201412
